FAERS Safety Report 14273291 (Version 1)
Quarter: 2017Q4

REPORT INFORMATION
  Report Type: Spontaneous
  Country: US (occurrence: US)
  Receive Date: 20171212
  Receipt Date: 20171212
  Transmission Date: 20180321
  Serious: No
  Sender: FDA-Public Use
  Company Number: US-B.I. PHARMACEUTICALS,INC./RIDGEFIELD-2017-BI-064998

PATIENT
  Age: 24 Year
  Sex: Male

DRUGS (3)
  1. PRAMIPEXOLE. [Suspect]
     Active Substance: PRAMIPEXOLE
     Indication: PARKINSONISM
     Route: 065
  2. L DOPA [Concomitant]
     Active Substance: LEVODOPA
     Indication: PARKINSONISM
     Route: 048
  3. PRAMIPEXOLE. [Suspect]
     Active Substance: PRAMIPEXOLE

REACTIONS (6)
  - Compulsive shopping [Not Recovered/Not Resolved]
  - Sexually inappropriate behaviour [Not Recovered/Not Resolved]
  - Dysphagia [Unknown]
  - Gait disturbance [Unknown]
  - Restlessness [Not Recovered/Not Resolved]
  - Hypokinesia [Unknown]
